FAERS Safety Report 12502400 (Version 1)
Quarter: 2016Q2

REPORT INFORMATION
  Report Type: Spontaneous
  Country: JP (occurrence: JP)
  Receive Date: 20160627
  Receipt Date: 20160627
  Transmission Date: 20160815
  Serious: Yes (Death)
  Sender: FDA-Public Use
  Company Number: PHJP1900JP005446

PATIENT
  Age: 42 Year
  Sex: Female

DRUGS (15)
  1. SANDIMMUN SOLUTION [Suspect]
     Active Substance: CYCLOSPORINE
     Indication: TRANSPLANT REJECTION
     Dosage: 690 MG, QD
     Route: 048
     Dates: start: 19870714, end: 19870720
  2. SANDIMMUN SOLUTION [Suspect]
     Active Substance: CYCLOSPORINE
     Dosage: 500 MG, QD
     Route: 048
     Dates: start: 19870731, end: 19870811
  3. SANDIMMUN SOLUTION [Suspect]
     Active Substance: CYCLOSPORINE
     Dosage: 390 MG, QD
     Route: 048
     Dates: start: 19870828
  4. SANDIMMUN SOLUTION [Suspect]
     Active Substance: CYCLOSPORINE
     Dosage: 430 MG, QD
     Route: 048
     Dates: start: 19871111, end: 19871117
  5. SANDIMMUN SOLUTION [Suspect]
     Active Substance: CYCLOSPORINE
     Dosage: 460 MG, QD
     Route: 048
     Dates: start: 19870812, end: 19870827
  6. PREDONINE [Concomitant]
     Active Substance: PREDNISOLONE\PREDNISOLONE ACETATE\PREDNISOLONE SODIUM SUCCINATE
     Indication: PRODUCT USED FOR UNKNOWN INDICATION
     Dosage: 80-20MG
     Route: 048
     Dates: start: 19870813, end: 19871213
  7. SANDIMMUN SOLUTION [Suspect]
     Active Substance: CYCLOSPORINE
     Dosage: 330 MG, QD
     Route: 048
     Dates: start: 19870917, end: 19871013
  8. SANDIMMUN SOLUTION [Suspect]
     Active Substance: CYCLOSPORINE
     Dosage: 250 MG, QD
     Route: 048
     Dates: start: 19871014, end: 19871110
  9. BREDININ [Concomitant]
     Active Substance: MIZORIBINE
     Indication: PRODUCT USED FOR UNKNOWN INDICATION
     Dosage: 100 MG, QD
     Route: 048
     Dates: start: 19870812, end: 19871210
  10. SANDIMMUN SOLUTION [Suspect]
     Active Substance: CYCLOSPORINE
     Dosage: 280 MG, QD
     Route: 048
     Dates: start: 19870721, end: 19870730
  11. SANDIMMUN SOLUTION [Suspect]
     Active Substance: CYCLOSPORINE
     Dosage: 320 MG, QD
     Route: 048
     Dates: start: 19871118, end: 19871123
  12. SANDIMMUN SOLUTION [Suspect]
     Active Substance: CYCLOSPORINE
     Dosage: 290 MG, QD
     Route: 048
     Dates: start: 19871124, end: 19871125
  13. SANDIMMUN SOLUTION [Suspect]
     Active Substance: CYCLOSPORINE
     Dosage: 170 MG, QD
     Route: 048
     Dates: start: 19871126, end: 19871216
  14. SOLU-MEDROL [Concomitant]
     Active Substance: METHYLPREDNISOLONE SODIUM SUCCINATE
     Indication: PRODUCT USED FOR UNKNOWN INDICATION
     Dosage: 500-125MG
     Route: 065
     Dates: start: 19870714, end: 19870812
  15. AHLBULIN [Concomitant]
     Indication: PRODUCT USED FOR UNKNOWN INDICATION
     Dosage: 1500-500MG
     Route: 065
     Dates: start: 19870721, end: 19870811

REACTIONS (2)
  - Aspergillus infection [Fatal]
  - Hyperchloraemia [Not Recovered/Not Resolved]
